FAERS Safety Report 6359515-1 (Version None)
Quarter: 2009Q3

REPORT INFORMATION
  Report Type: 
  Country: None (occurrence: None)
  Receive Date: 20090917
  Receipt Date: 20090910
  Transmission Date: 20100115
  Serious: Yes (Other)
  Sender: FDA-Public Use
  Company Number: JP-AVENTIS-200912136JP

PATIENT
  Age: 65 Year
  Sex: Male
  Weight: 58 kg

DRUGS (10)
  1. LASIX [Suspect]
     Route: 048
  2. PLAVIX [Suspect]
     Indication: ANGINA PECTORIS
     Route: 048
  3. AMLODIPINE [Concomitant]
     Indication: HYPERTENSION
     Route: 048
  4. TAKEPRON [Concomitant]
     Route: 048
  5. CARDENALIN [Concomitant]
     Indication: HYPERTENSION
     Route: 048
  6. CLARITIN [Concomitant]
     Route: 048
  7. ASPIRIN [Concomitant]
     Indication: ANGINA PECTORIS
     Route: 048
  8. MICARDIS [Concomitant]
     Indication: HYPERTENSION
     Route: 048
     Dates: end: 20090629
  9. FULSTAN [Concomitant]
     Indication: SECONDARY HYPERTHYROIDISM
     Route: 048
     Dates: end: 20090525
  10. ADALAT [Concomitant]
     Indication: HYPERTENSION
     Route: 048
     Dates: start: 20081121

REACTIONS (2)
  - BLOOD CREATINE PHOSPHOKINASE INCREASED [None]
  - RHABDOMYOLYSIS [None]
